FAERS Safety Report 8041183-4 (Version None)
Quarter: 2012Q1

REPORT INFORMATION
  Report Type: 
  Country: None (occurrence: None)
  Receive Date: 20120109
  Receipt Date: 20111227
  Transmission Date: 20120608
  Serious: Yes (Hospitalization, Other)
  Sender: FDA-Public Use
  Company Number: 2011P1015723

PATIENT
  Age: 58 Year
  Sex: Female

DRUGS (2)
  1. HEPARIN [Suspect]
     Indication: ANTICOAGULANT THERAPY
     Dosage: 1000 UNITS;QD
  2. WARFARIN SODIUM [Concomitant]

REACTIONS (4)
  - ALANINE AMINOTRANSFERASE INCREASED [None]
  - THROMBOSIS IN DEVICE [None]
  - ASPARTATE AMINOTRANSFERASE INCREASED [None]
  - HEPARIN-INDUCED THROMBOCYTOPENIA [None]
